FAERS Safety Report 15378329 (Version 3)
Quarter: 2018Q4

REPORT INFORMATION
  Report Type: Report from Study
  Country: GB (occurrence: GB)
  Receive Date: 20180913
  Receipt Date: 20181208
  Transmission Date: 20190204
  Serious: Yes (Hospitalization, Other)
  Sender: FDA-Public Use
  Company Number: GB-ROCHE-1897285

PATIENT
  Age: 70 Year
  Sex: Male

DRUGS (2)
  1. ROACTEMRA [Suspect]
     Active Substance: TOCILIZUMAB
     Indication: RHEUMATOID ARTHRITIS
     Route: 058
     Dates: start: 20170209
  2. METHOTREXATE. [Concomitant]
     Active Substance: METHOTREXATE

REACTIONS (3)
  - Skin ulcer [Unknown]
  - Tooth infection [Unknown]
  - Arthritis infective [Unknown]
